FAERS Safety Report 12790180 (Version 1)
Quarter: 2016Q3

REPORT INFORMATION
  Report Type: Spontaneous
  Country: DE (occurrence: DE)
  Receive Date: 20160928
  Receipt Date: 20160928
  Transmission Date: 20161109
  Serious: Yes (Other)
  Sender: FDA-Public Use
  Company Number: GXKR2016DE004506

PATIENT
  Age: 77 Year
  Sex: Female

DRUGS (1)
  1. CANDESARTAN - 1 A PHARMA [Suspect]
     Active Substance: CANDESARTAN
     Indication: PRODUCT USED FOR UNKNOWN INDICATION
     Route: 048

REACTIONS (4)
  - Hypotension [Unknown]
  - Nausea [Unknown]
  - Feeling of body temperature change [Unknown]
  - Loss of consciousness [Unknown]
